FAERS Safety Report 9590518 (Version 2)
Quarter: 2013Q4

REPORT INFORMATION
  Report Type: Spontaneous
  Country: US (occurrence: US)
  Receive Date: 20131003
  Receipt Date: 20131003
  Transmission Date: 20140711
  Serious: No
  Sender: FDA-Public Use
  Company Number: US-AMGEN-USASP2012073642

PATIENT
  Age: 29 Year
  Sex: Female

DRUGS (1)
  1. ENBREL [Suspect]
     Indication: PSORIASIS
     Dosage: 50 MG, QWK
     Dates: start: 20110927

REACTIONS (5)
  - Local swelling [Recovered/Resolved]
  - Migraine [Unknown]
  - Drug administered at inappropriate site [Unknown]
  - Injury associated with device [Unknown]
  - Chest pain [Unknown]
